FAERS Safety Report 5160347-0 (Version None)
Quarter: 2006Q4

REPORT INFORMATION
  Report Type: 
  Country: None (occurrence: None)
  Receive Date: 20061129
  Receipt Date: 20031203
  Transmission Date: 20070319
  Serious: Yes (Death, Hospitalization)
  Sender: FDA-Public Use
  Company Number: US-SANOFI-SYNTHELABO-A03200302898

PATIENT
  Sex: Female
  Weight: 85.3 kg

DRUGS (6)
  1. PLAVIX [Suspect]
     Indication: CARDIAC FAILURE CONGESTIVE
     Route: 048
     Dates: start: 20031001, end: 20031127
  2. ASPIRIN [Concomitant]
     Route: 048
  3. ASPIRIN [Concomitant]
     Route: 048
  4. LEXAPRO [Concomitant]
     Dosage: UNK
     Route: 048
  5. ^DIABETIC MEDICATION (NAME UNKNOWN)^ [Concomitant]
     Dosage: UNK
     Route: 065
  6. PEPCID [Concomitant]
     Dosage: UNK
     Route: 065

REACTIONS (5)
  - CEREBROVASCULAR ACCIDENT [None]
  - DIARRHOEA HAEMORRHAGIC [None]
  - DRUG INEFFECTIVE [None]
  - GASTRIC ULCER HAEMORRHAGE [None]
  - HAEMATEMESIS [None]
